FAERS Safety Report 8606305-2 (Version None)
Quarter: 2012Q3

REPORT INFORMATION
  Report Type: 
  Country: None (occurrence: None)
  Receive Date: 20120820
  Receipt Date: 20120809
  Transmission Date: 20120928
  Serious: Yes (Other)
  Sender: FDA-Public Use
  Company Number: FI-ROCHE-1102658

PATIENT

DRUGS (1)
  1. AVASTIN [Suspect]
     Indication: BREAST CANCER
     Route: 065
     Dates: end: 20090101

REACTIONS (2)
  - QUALITY OF LIFE DECREASED [None]
  - DRUG INEFFECTIVE [None]
